FAERS Safety Report 6602700-1 (Version None)
Quarter: 2010Q1

REPORT INFORMATION
  Report Type: 
  Country: None (occurrence: None)
  Receive Date: 20100218
  Receipt Date: 20100204
  Transmission Date: 20100710
  Serious: Yes (Other)
  Sender: FDA-Public Use
  Company Number: 1000011817

PATIENT
  Age: 32 Year
  Sex: Male

DRUGS (4)
  1. LEXAPRO [Suspect]
     Indication: DEPRESSION
     Dosage: 5 MG 95 MG, 1 IN 1 D), ORAL, 10 MG (10 MG, 1 IN 1 D), ORAL
     Route: 048
     Dates: start: 20100127, end: 20100129
  2. LEXAPRO [Suspect]
     Indication: DEPRESSION
     Dosage: 5 MG 95 MG, 1 IN 1 D), ORAL, 10 MG (10 MG, 1 IN 1 D), ORAL
     Route: 048
     Dates: start: 20100130
  3. CORTISON [Concomitant]
  4. CLONAZEPAM [Concomitant]

REACTIONS (2)
  - FATIGUE [None]
  - RESTLESSNESS [None]
